FAERS Safety Report 15886150 (Version 1)
Quarter: 2019Q1

REPORT INFORMATION
  Report Type: Spontaneous
  Country: BR (occurrence: BR)
  Receive Date: 20190129
  Receipt Date: 20190129
  Transmission Date: 20190417
  Serious: Yes (Other)
  Sender: FDA-Public Use
  Company Number: BR-PFIZER INC-2019033088

PATIENT
  Age: 14 Year
  Sex: Female

DRUGS (1)
  1. TALIGLUCERASE ALFA [Suspect]
     Active Substance: TALIGLUCERASE ALFA
     Indication: GAUCHER^S DISEASE
     Dosage: 5 VIALS EVERY 15 DAYS
     Route: 042
     Dates: start: 201710

REACTIONS (3)
  - Haematemesis [Recovering/Resolving]
  - Breath odour [Recovering/Resolving]
  - Gingival bleeding [Recovering/Resolving]
